FAERS Safety Report 8539767-X (Version None)
Quarter: 2012Q3

REPORT INFORMATION
  Report Type: 
  Country: None (occurrence: None)
  Receive Date: 20120726
  Receipt Date: 20120723
  Transmission Date: 20120928
  Serious: Yes (Hospitalization, Other)
  Sender: FDA-Public Use
  Company Number: US-AMGEN-USASP2012040568

PATIENT
  Age: 53 Year
  Sex: Female
  Weight: 57 kg

DRUGS (8)
  1. RENVELA [Concomitant]
     Dosage: 3200 MG, TID
     Route: 048
     Dates: start: 20081001
  2. EPOGEN [Suspect]
     Indication: PERITONEAL DIALYSIS
     Dosage: 20000 IU, QWK
     Dates: start: 20120501
  3. PREDNISONE [Concomitant]
     Dosage: 10 MG, QD
     Route: 048
     Dates: start: 19910101
  4. CEPHALOSPORIN C [Concomitant]
     Dosage: 50 MG, BID
     Route: 048
     Dates: start: 19910101
  5. DILTIAZEM [Concomitant]
     Dosage: 120 MG, QD
     Route: 048
     Dates: start: 19910101
  6. EPOGEN [Suspect]
     Indication: ANAEMIA
     Dosage: 20000 IU, 2 TIMES/WK
     Dates: start: 20120601, end: 20120627
  7. PROCRIT [Suspect]
     Indication: PRODUCT USED FOR UNKNOWN INDICATION
     Dosage: UNK
     Dates: start: 20060901
  8. HECTOROL [Concomitant]
     Dosage: 1 MG, QD
     Route: 048
     Dates: start: 20081001

REACTIONS (3)
  - DRUG INEFFECTIVE [None]
  - APLASIA PURE RED CELL [None]
  - ASTHENIA [None]
